FAERS Safety Report 14190050 (Version 3)
Quarter: 2017Q4

REPORT INFORMATION
  Report Type: Report from Study
  Country: FR (occurrence: FR)
  Receive Date: 20171115
  Receipt Date: 20171221
  Transmission Date: 20180321
  Serious: Yes (Hospitalization)
  Sender: FDA-Public Use
  Company Number: FR-ROCHE-2022455

PATIENT
  Age: 59 Year
  Sex: Female
  Weight: 92.8 kg

DRUGS (3)
  1. ATEZOLIZUMAB. [Suspect]
     Active Substance: ATEZOLIZUMAB
     Indication: OVARIAN CANCER
     Dosage: C1D1?MOST RECENT DOSE (C2D1) ON 17/OCT/2017
     Route: 042
     Dates: start: 20170926
  2. BLINDED ASPIRIN [Suspect]
     Active Substance: ASPIRIN
     Indication: OVARIAN CANCER
     Dosage: LAST DOSE PRIOR TO ADVERSE EVENT ON 5/NOV/2017
     Route: 048
     Dates: start: 20170926
  3. BEVACIZUMAB. [Suspect]
     Active Substance: BEVACIZUMAB
     Indication: OVARIAN CANCER
     Dosage: C1D1
     Route: 042
     Dates: start: 20170926

REACTIONS (1)
  - Small intestinal obstruction [Recovered/Resolved with Sequelae]

NARRATIVE: CASE EVENT DATE: 20171106
